FAERS Safety Report 11775326 (Version 1)
Quarter: 2015Q4

REPORT INFORMATION
  Report Type: Spontaneous
  Country: US (occurrence: US)
  Receive Date: 20151125
  Receipt Date: 20151125
  Transmission Date: 20160304
  Serious: Yes (Hospitalization)
  Sender: FDA-Public Use
  Company Number: US-ACTELION-A-NJ2015-119048

PATIENT
  Age: 60 Year
  Sex: Female

DRUGS (3)
  1. VELETRI [Suspect]
     Active Substance: EPOPROSTENOL
     Indication: PULMONARY ARTERIAL HYPERTENSION
     Dosage: 48 NG/KG, PER MIN
     Route: 042
     Dates: start: 20140904
  2. COUMADIN [Concomitant]
     Active Substance: WARFARIN SODIUM
  3. ADCIRCA [Concomitant]
     Active Substance: TADALAFIL

REACTIONS (8)
  - Asthenia [Unknown]
  - Flushing [Recovered/Resolved]
  - Nausea [Unknown]
  - Hypotension [Unknown]
  - Dizziness [Unknown]
  - Drug dose omission [Unknown]
  - Device malfunction [Unknown]
  - Syncope [Unknown]

NARRATIVE: CASE EVENT DATE: 2015
